FAERS Safety Report 9129728 (Version 3)
Quarter: 2013Q1

REPORT INFORMATION
  Report Type: Report from Study
  Country: US (occurrence: US)
  Receive Date: 20130125
  Receipt Date: 20130313
  Transmission Date: 20140127
  Serious: Yes (Hospitalization, Other)
  Sender: FDA-Public Use
  Company Number: US-PURDUE-USA-2013-0097746

PATIENT
  Sex: Male
  Weight: 106.4 kg

DRUGS (3)
  1. OXYCONTIN (NDA 22-272) [Suspect]
     Indication: ANALGESIC THERAPY
     Dosage: 40 MG, Q12H
     Route: 048
  2. OXYCONTIN (NDA 22-272) [Suspect]
     Indication: TESTICULAR PAIN
     Dosage: 400 MG, Q12H
     Route: 048
  3. OXYCONTIN (NDA 22-272) [Suspect]
     Dosage: 240 MG, Q12H
     Route: 048

REACTIONS (5)
  - Malignant neoplasm progression [Not Recovered/Not Resolved]
  - Inadequate analgesia [Unknown]
  - Drug tolerance [Unknown]
  - Procedural pain [Recovering/Resolving]
  - Testicular pain [Recovering/Resolving]
